FAERS Safety Report 8337387-3 (Version None)
Quarter: 2012Q1

REPORT INFORMATION
  Report Type: 
  Country: None (occurrence: None)
  Receive Date: 20120329
  Receipt Date: 20100601
  Transmission Date: 20120608
  Serious: Yes (Other)
  Sender: FDA-Public Use
  Company Number: PHHY2010US36388

PATIENT
  Sex: Female

DRUGS (1)
  1. EXELON [Suspect]
     Dosage: 9.5 MG, QD, TRANSDERMAL
     Route: 062
     Dates: start: 20091001, end: 20100501

REACTIONS (2)
  - APPLICATION SITE DERMATITIS [None]
  - APPLICATION SITE RASH [None]
